FAERS Safety Report 14216750 (Version 1)
Quarter: 2017Q4

REPORT INFORMATION
  Report Type: Spontaneous
  Country: JP (occurrence: JP)
  Receive Date: 20171122
  Receipt Date: 20171122
  Transmission Date: 20180321
  Serious: Yes (Other)
  Sender: FDA-Public Use
  Company Number: JP-009507513-1710JPN004878

PATIENT
  Age: 69 Year
  Sex: Male
  Weight: 47.5 kg

DRUGS (3)
  1. GLACTIV [Suspect]
     Active Substance: SITAGLIPTIN
     Indication: TYPE 2 DIABETES MELLITUS
     Dosage: 50 MG, QD
     Route: 048
     Dates: start: 20170823, end: 20170829
  2. GLACTIV [Suspect]
     Active Substance: SITAGLIPTIN
     Dosage: 50 MG, EVERY OTHER DAY
     Route: 048
     Dates: start: 20170830, end: 20170927
  3. AMLODIPINE BESYLATE. [Concomitant]
     Active Substance: AMLODIPINE BESYLATE
     Dosage: UNK
     Dates: start: 20140910

REACTIONS (2)
  - Hepatic function abnormal [Recovered/Resolved]
  - Wrong technique in product usage process [Unknown]

NARRATIVE: CASE EVENT DATE: 20170830
